FAERS Safety Report 6078479 (Version 6)
Quarter: 2012Q4

REPORT INFORMATION
  Report Type: 
  Country: US (occurrence: US)
  Receive Date: 20060707
  Receipt Date: 20121219
  Transmission Date: 20130627
  Serious: Yes (Death, Hospitalization, Other)
  Sender: FDA-Public Use
  Company Number: PHEH2006US01763

PATIENT
  Age: 54 None
  Sex: Female
  Weight: 56.24 kg

DRUGS (12)
  1. TRILEPTAL [Suspect]
     Indication: CONVULSION
     Dates: start: 20030129, end: 20030131
  2. TRILEPTAL [Suspect]
     Indication: MOOD ALTERED
  3. DILANTIN [Suspect]
     Indication: CONVULSION
     Dates: start: 200212
  4. ACYCLOVIR [Concomitant]
  5. NYSTATIN [Concomitant]
  6. TRIAMCINOLONE [Concomitant]
  7. PEPCID [Concomitant]
  8. DOCUSATE [Concomitant]
  9. CEFTRIAXONE [Concomitant]
  10. FLUCONAZOLE [Concomitant]
  11. NEURONTIN [Concomitant]
  12. GYNE-LOTRIMIN [Concomitant]

REACTIONS (61)
  - Death [Fatal]
  - Injury [Unknown]
  - Coronary artery disease [Unknown]
  - Chest pain [Unknown]
  - Malignant neoplasm progression [Unknown]
  - Haemoglobin decreased [Unknown]
  - Dehydration [Unknown]
  - Cachexia [Unknown]
  - Colonoscopy abnormal [Unknown]
  - Lymph node palpable [Unknown]
  - Headache [Unknown]
  - Insomnia [Unknown]
  - Asthenia [Unknown]
  - Proctalgia [Unknown]
  - Abdominal pain [Unknown]
  - Nausea [Unknown]
  - Vomiting [Unknown]
  - Respiratory failure [Recovered/Resolved]
  - Blood gases abnormal [Unknown]
  - Hypoxia [Unknown]
  - Haematocrit decreased [Unknown]
  - Confusional state [Recovered/Resolved]
  - Toxic epidermal necrolysis [Unknown]
  - Rash erythematous [Unknown]
  - Skin exfoliation [Unknown]
  - Pruritus [Unknown]
  - Blister [Unknown]
  - Facial pain [Unknown]
  - Dysphagia [Unknown]
  - Stomatitis [Unknown]
  - Mouth ulceration [Unknown]
  - Sputum purulent [Unknown]
  - Vulval ulceration [Unknown]
  - Vaginal discharge [Unknown]
  - Pyrexia [Unknown]
  - Periorbital oedema [Unknown]
  - Aspartate aminotransferase increased [Unknown]
  - Alanine aminotransferase increased [Unknown]
  - Blood alkaline phosphatase [Unknown]
  - Blood sodium decreased [Unknown]
  - Blood calcium decreased [Unknown]
  - Blood potassium increased [Unknown]
  - Blood glucose increased [Unknown]
  - Acute sinusitis [Unknown]
  - Nuclear magnetic resonance imaging brain abnormal [Unknown]
  - Constipation [Unknown]
  - Urticaria [Unknown]
  - Oral pain [Unknown]
  - Oral candidiasis [Unknown]
  - Leukopenia [Unknown]
  - Hepatitis [Unknown]
  - Mucosal inflammation [Unknown]
  - Encephalomalacia [Unknown]
  - Oral mucosal blistering [Unknown]
  - Tongue blistering [Unknown]
  - Oropharyngeal blistering [Unknown]
  - Pain [Unknown]
  - Dyspnoea [Unknown]
  - Respiratory distress [Unknown]
  - Anxiety [Unknown]
  - Anhedonia [Unknown]
